FAERS Safety Report 4790842-5 (Version None)
Quarter: 2005Q4

REPORT INFORMATION
  Report Type: 
  Country: None (occurrence: None)
  Receive Date: 20051006
  Receipt Date: 20050706
  Transmission Date: 20060501
  Serious: Yes (Death, Other)
  Sender: FDA-Public Use
  Company Number: HK-ABBOTT-05P-075-0305483-00

PATIENT
  Age: 55 Year
  Sex: Female

DRUGS (5)
  1. CLARITHROMYCIN [Suspect]
     Indication: PNEUMONIA
     Dosage: THREE DOSES AFTER ADMISSION
     Route: 048
     Dates: start: 20030823, end: 20030825
  2. COLCHICINE [Interacting]
     Indication: GOUT
     Dosage: FIVE DOSES TOTAL
     Route: 048
     Dates: start: 20030823, end: 20030825
  3. ADALAT [Concomitant]
     Indication: HYPERTENSION
  4. ALUMINUM HYDROXIDE GEL [Concomitant]
     Indication: BLOOD PHOSPHORUS INCREASED
  5. INSULIN [Concomitant]
     Indication: DIABETES MELLITUS
     Route: 058
     Dates: start: 20030823, end: 20030905

REACTIONS (5)
  - BONE MARROW FAILURE [None]
  - DRUG INTERACTION [None]
  - DRUG TOXICITY [None]
  - FEBRILE NEUTROPENIA [None]
  - PANCYTOPENIA [None]
